FAERS Safety Report 11575239 (Version 3)
Quarter: 2018Q1

REPORT INFORMATION
  Report Type: Report from Study
  Country: JP (occurrence: JP)
  Receive Date: 20150930
  Receipt Date: 20180319
  Transmission Date: 20180508
  Serious: Yes (Other)
  Sender: FDA-Public Use
  Company Number: JP-ASTELLAS-2009JP006400

PATIENT
  Age: 22 Year
  Sex: Female
  Weight: 50 kg

DRUGS (64)
  1. OLMETEC [Concomitant]
     Active Substance: OLMESARTAN MEDOXOMIL
     Route: 048
     Dates: start: 20170420, end: 20170705
  2. MYSLEE [Concomitant]
     Active Substance: ZOLPIDEM TARTRATE
     Indication: DEPRESSION
     Route: 048
     Dates: end: 20141010
  3. MYSLEE [Concomitant]
     Active Substance: ZOLPIDEM TARTRATE
     Indication: INSOMNIA
  4. TETRAMIDE [Concomitant]
     Active Substance: MIANSERIN
     Route: 048
     Dates: start: 20101019, end: 20110217
  5. TRAZODONE [Concomitant]
     Active Substance: TRAZODONE HYDROCHLORIDE
     Route: 048
     Dates: start: 20130123, end: 20130814
  6. RIVOTRIL [Concomitant]
     Active Substance: CLONAZEPAM
     Route: 048
     Dates: start: 20100915, end: 20101011
  7. SELBEX [Concomitant]
     Active Substance: TEPRENONE
     Indication: PROPHYLAXIS
     Dosage: UNK UNK, UNKNOWN FREQ.
     Route: 048
     Dates: end: 20080424
  8. WYPAX [Concomitant]
     Active Substance: LORAZEPAM
     Indication: DEPRESSION
  9. PAXIL [Concomitant]
     Active Substance: PAROXETINE HYDROCHLORIDE
     Indication: DEPRESSION
  10. PREDNISOLONE. [Suspect]
     Active Substance: PREDNISOLONE
     Route: 048
     Dates: start: 20080313, end: 20111221
  11. PREDNISOLONE. [Suspect]
     Active Substance: PREDNISOLONE
     Route: 048
     Dates: start: 20150312, end: 20150529
  12. OLMETEC [Concomitant]
     Active Substance: OLMESARTAN MEDOXOMIL
     Route: 048
     Dates: start: 20100309, end: 20140508
  13. BAYASPIRIN [Concomitant]
     Active Substance: ASPIRIN
     Indication: PRODUCT USED FOR UNKNOWN INDICATION
     Route: 048
     Dates: end: 20090615
  14. NELBON [Concomitant]
     Active Substance: NITRAZEPAM
     Indication: INSOMNIA
     Route: 048
     Dates: start: 20120201, end: 20120228
  15. AMLODIN [Concomitant]
     Active Substance: AMLODIPINE BESYLATE
     Indication: PRODUCT USED FOR UNKNOWN INDICATION
     Dosage: UNK UNK, UNKNOWN FREQ.
     Route: 048
     Dates: end: 20080602
  16. SOLANAX [Concomitant]
     Active Substance: ALPRAZOLAM
     Indication: INSOMNIA
     Dosage: 0.4 MG, ONCE DAILY
     Route: 048
     Dates: start: 20121009, end: 2012
  17. SOLANAX [Concomitant]
     Active Substance: ALPRAZOLAM
     Indication: DEPRESSION
  18. PREDNISOLONE. [Suspect]
     Active Substance: PREDNISOLONE
     Indication: LUPUS NEPHRITIS
     Route: 048
     Dates: end: 20070930
  19. PREDNISOLONE. [Suspect]
     Active Substance: PREDNISOLONE
     Route: 048
     Dates: start: 20150530, end: 20160427
  20. OLMETEC [Concomitant]
     Active Substance: OLMESARTAN MEDOXOMIL
     Route: 048
     Dates: start: 20150530, end: 20170419
  21. ONEALFA [Concomitant]
     Active Substance: ALFACALCIDOL
     Indication: PROPHYLAXIS
     Dosage: 0.5 ?G, ONCE DAILY
     Route: 048
     Dates: end: 20100308
  22. BAYASPIRIN [Concomitant]
     Active Substance: ASPIRIN
     Route: 048
  23. HALCION [Concomitant]
     Active Substance: TRIAZOLAM
     Dosage: 0.25 MG, ONCE DAILY
     Route: 048
     Dates: start: 20110206, end: 20120131
  24. DEPAKENE [Concomitant]
     Active Substance: VALPROIC ACID
     Route: 048
     Dates: start: 20101019, end: 20110217
  25. NEUROVITAN [Concomitant]
     Active Substance: VITAMINS
     Indication: PROPHYLAXIS
     Dosage: UNK UNK, UNKNOWN FREQ.
     Route: 048
     Dates: end: 20080428
  26. WYPAX [Concomitant]
     Active Substance: LORAZEPAM
     Indication: INSOMNIA
     Dosage: 0.5 MG, ONCE DAILY
     Route: 048
     Dates: start: 20120717, end: 20121008
  27. AZILVA [Concomitant]
     Active Substance: AZILSARTAN KAMEDOXOMIL
     Indication: PRODUCT USED FOR UNKNOWN INDICATION
     Route: 048
     Dates: start: 20140509, end: 20150529
  28. PREDNISOLONE. [Suspect]
     Active Substance: PREDNISOLONE
     Route: 048
     Dates: start: 20160428, end: 20160928
  29. HALCION [Concomitant]
     Active Substance: TRIAZOLAM
     Indication: INSOMNIA
     Dosage: 0.125 MG, ONCE DAILY
     Route: 048
     Dates: start: 20110112, end: 20110205
  30. HALCION [Concomitant]
     Active Substance: TRIAZOLAM
     Dosage: 0.25 MG, ONCE DAILY
     Route: 048
     Dates: start: 20120725, end: 20120815
  31. LIPITOR [Concomitant]
     Active Substance: ATORVASTATIN CALCIUM
     Indication: PRODUCT USED FOR UNKNOWN INDICATION
     Dosage: UNK UNK, UNKNOWN FREQ.
     Route: 048
     Dates: end: 20080602
  32. WYPAX [Concomitant]
     Active Substance: LORAZEPAM
     Indication: INSOMNIA
  33. TAKEPRON [Concomitant]
     Active Substance: LANSOPRAZOLE
     Indication: NAUSEA
     Route: 048
     Dates: start: 20170223, end: 20170705
  34. BONALON [Concomitant]
     Active Substance: ALENDRONATE SODIUM
     Indication: PROPHYLAXIS
     Route: 048
  35. ROHYPNOL [Concomitant]
     Active Substance: FLUNITRAZEPAM
     Indication: INSOMNIA
     Route: 048
     Dates: start: 20100610, end: 20100817
  36. EURODIN                            /00425901/ [Concomitant]
     Active Substance: ESTAZOLAM
     Indication: INSOMNIA
     Route: 048
     Dates: start: 20111206, end: 20111215
  37. JZOLOFT [Concomitant]
     Active Substance: SERTRALINE HYDROCHLORIDE
     Indication: DEPRESSION
     Route: 048
     Dates: start: 20110218, end: 20110701
  38. BAKTAR [Concomitant]
     Active Substance: SULFAMETHOXAZOLE\TRIMETHOPRIM
     Indication: PROPHYLAXIS
     Dosage: UNK UNK, UNKNOWN FREQ.
     Route: 048
     Dates: end: 20080424
  39. TACROLIMUS. [Suspect]
     Active Substance: TACROLIMUS
     Indication: LUPUS NEPHRITIS
     Route: 048
     Dates: start: 20070806
  40. WARFARIN [Concomitant]
     Active Substance: WARFARIN
     Indication: PRODUCT USED FOR UNKNOWN INDICATION
     Route: 048
     Dates: end: 20160203
  41. ALLEGRA [Concomitant]
     Active Substance: FEXOFENADINE HYDROCHLORIDE
     Indication: RHINITIS ALLERGIC
     Route: 048
     Dates: start: 20110427, end: 20110524
  42. RIVOTRIL [Concomitant]
     Active Substance: CLONAZEPAM
     Indication: EPILEPSY
     Route: 048
     Dates: start: 20100818, end: 20100914
  43. NEO-MINOPHAGEN C [Concomitant]
     Active Substance: AMMONIUM GLYCYRRHIZATE
     Indication: LIVER DISORDER
     Route: 042
  44. PREDNISOLONE. [Suspect]
     Active Substance: PREDNISOLONE
     Route: 048
     Dates: start: 20111222, end: 20150311
  45. PREDNISOLONE. [Suspect]
     Active Substance: PREDNISOLONE
     Route: 048
     Dates: start: 20170420
  46. OLMETEC [Concomitant]
     Active Substance: OLMESARTAN MEDOXOMIL
     Indication: PRODUCT USED FOR UNKNOWN INDICATION
     Route: 048
     Dates: end: 20100308
  47. TAKEPRON [Concomitant]
     Active Substance: LANSOPRAZOLE
     Indication: PROPHYLAXIS AGAINST GASTROINTESTINAL ULCER
     Route: 048
     Dates: end: 20170222
  48. MYSLEE [Concomitant]
     Active Substance: ZOLPIDEM TARTRATE
     Indication: DEPRESSION
  49. ROHYPNOL [Concomitant]
     Active Substance: FLUNITRAZEPAM
     Route: 048
     Dates: start: 20111129, end: 20111205
  50. MEILAX [Concomitant]
     Active Substance: ETHYL LOFLAZEPATE
     Indication: INSOMNIA
     Route: 048
     Dates: start: 20120229, end: 20120716
  51. DEPAKENE [Concomitant]
     Active Substance: VALPROIC ACID
     Indication: EPILEPSY
     Route: 048
     Dates: start: 20100803, end: 20101018
  52. PAXIL [Concomitant]
     Active Substance: PAROXETINE HYDROCHLORIDE
     Indication: INSOMNIA
     Route: 048
     Dates: start: 20121226, end: 20130122
  53. REFLEX                             /01293201/ [Concomitant]
     Active Substance: MIRTAZAPINE
     Indication: DEPRESSION
  54. FEBURIC [Concomitant]
     Active Substance: FEBUXOSTAT
     Indication: HYPERURICAEMIA
     Route: 048
     Dates: start: 20160929
  55. PREDNISOLONE. [Suspect]
     Active Substance: PREDNISOLONE
     Route: 048
     Dates: start: 20071001, end: 20080312
  56. PREDNISOLONE. [Suspect]
     Active Substance: PREDNISOLONE
     Route: 048
     Dates: start: 20160929, end: 20170419
  57. TETRAMIDE [Concomitant]
     Active Substance: MIANSERIN
     Indication: DEPRESSION
     Route: 048
     Dates: start: 20100803, end: 20100817
  58. TETRAMIDE [Concomitant]
     Active Substance: MIANSERIN
     Route: 048
     Dates: start: 20100915, end: 20101018
  59. TRAZODONE [Concomitant]
     Active Substance: TRAZODONE HYDROCHLORIDE
     Indication: DEPRESSION
     Route: 048
     Dates: start: 20100818, end: 20100831
  60. TRAZODONE [Concomitant]
     Active Substance: TRAZODONE HYDROCHLORIDE
     Indication: DEPRESSION
     Route: 048
     Dates: start: 20100901, end: 20100915
  61. RIVOTRIL [Concomitant]
     Active Substance: CLONAZEPAM
     Route: 048
     Dates: start: 20101012, end: 20110217
  62. JZOLOFT [Concomitant]
     Active Substance: SERTRALINE HYDROCHLORIDE
     Indication: DEPRESSION
     Route: 048
     Dates: start: 20121218, end: 20121225
  63. ACECOL [Concomitant]
     Active Substance: TEMOCAPRIL HYDROCHLORIDE
     Indication: PRODUCT USED FOR UNKNOWN INDICATION
     Dosage: UNK UNK, UNKNOWN FREQ.
     Route: 048
     Dates: end: 20080917
  64. REFLEX                             /01293201/ [Concomitant]
     Active Substance: MIRTAZAPINE
     Indication: INSOMNIA
     Route: 048
     Dates: start: 20130227, end: 20141010

REACTIONS (6)
  - Liver disorder [Recovered/Resolved]
  - Insomnia [Recovered/Resolved]
  - Hyperuricaemia [Recovering/Resolving]
  - Nausea [Recovering/Resolving]
  - Retinal haemorrhage [Recovered/Resolved]
  - Depression [Recovered/Resolved]

NARRATIVE: CASE EVENT DATE: 20090615
